FAERS Safety Report 9118176 (Version 1)
Quarter: 2013Q1

REPORT INFORMATION
  Report Type: Spontaneous
  Country: US (occurrence: US)
  Receive Date: 20130226
  Receipt Date: 20130226
  Transmission Date: 20140127
  Serious: Yes (Hospitalization, Other)
  Sender: FDA-Public Use
  Company Number: US-AMGEN-USASP2013012485

PATIENT
  Age: 56 Year
  Sex: Female

DRUGS (2)
  1. ENBREL [Suspect]
     Indication: PSORIASIS
     Dosage: 50 MG, VARYING FREQUENCIES
     Dates: start: 20070601, end: 201302
  2. ENBREL [Suspect]
     Indication: PSORIATIC ARTHROPATHY

REACTIONS (5)
  - Appendicitis perforated [Recovered/Resolved]
  - Peritonitis [Recovered/Resolved]
  - Upper limb fracture [Recovered/Resolved]
  - Blood pressure decreased [Recovered/Resolved]
  - Pneumonia [Recovered/Resolved]
